FAERS Safety Report 10188799 (Version 1)
Quarter: 2014Q2

REPORT INFORMATION
  Report Type: Spontaneous
  Country: US (occurrence: US)
  Receive Date: 20140522
  Receipt Date: 20140522
  Transmission Date: 20141212
  Serious: No
  Sender: FDA-Public Use
  Company Number: US-SA-2014SA023477

PATIENT
  Age: 81 Year
  Sex: Female

DRUGS (15)
  1. LANTUS SOLOSTAR [Suspect]
     Indication: TYPE 2 DIABETES MELLITUS
     Dosage: DOSAGE:20-40 U,FREQUECY:DEPENDS HOW HI I AM DOSE:20 UNIT(S)
     Route: 051
  2. SOLOSTAR [Concomitant]
     Indication: TYPE 2 DIABETES MELLITUS
  3. LEVOTHYROXINE [Concomitant]
  4. HYZAAR [Concomitant]
  5. PRAVASTATIN [Concomitant]
  6. ATENOLOL [Concomitant]
  7. NEURONTIN [Concomitant]
  8. COUMADIN [Concomitant]
  9. LANTUS [Concomitant]
  10. LASIX [Concomitant]
  11. POTASSIUM [Concomitant]
  12. VITAMIN D [Concomitant]
  13. INSULIN ASPART [Concomitant]
  14. DORZOLAMIDE [Concomitant]
  15. VITAMINS [Concomitant]

REACTIONS (3)
  - Visual impairment [Unknown]
  - Incorrect dose administered [Unknown]
  - Hearing impaired [Not Recovered/Not Resolved]
